FAERS Safety Report 8100640-2 (Version None)
Quarter: 2012Q1

REPORT INFORMATION
  Report Type: 
  Country: None (occurrence: None)
  Receive Date: 20120131
  Receipt Date: 20120124
  Transmission Date: 20120608
  Serious: Yes (Other)
  Sender: FDA-Public Use
  Company Number: BR-PFIZER INC-2011302011

PATIENT
  Age: 60 Year
  Sex: Female
  Weight: 71 kg

DRUGS (3)
  1. VARENICLINE TARTRATE [Suspect]
     Indication: SMOKING CESSATION THERAPY
     Dosage: UNK,2X/DAY (IN THE MORNING AND AT NIGHT)
     Route: 048
     Dates: start: 20111004, end: 20110101
  2. VARENICLINE TARTRATE [Suspect]
     Dosage: 1 MG, 2X/DAY (IN THE MORNING AND AT NIGHT)
     Route: 048
     Dates: start: 20110101
  3. FORMARE [Concomitant]
     Dosage: UNK

REACTIONS (6)
  - BLOOD PRESSURE INCREASED [None]
  - CHEST X-RAY ABNORMAL [None]
  - ANXIETY [None]
  - TREMOR [None]
  - WEIGHT INCREASED [None]
  - LUNG NEOPLASM [None]
